FAERS Safety Report 17231322 (Version 1)
Quarter: 2020Q1

REPORT INFORMATION
  Report Type: Spontaneous
  Country: US (occurrence: US)
  Receive Date: 20200103
  Receipt Date: 20200103
  Transmission Date: 20200409
  Serious: No
  Sender: FDA-Public Use
  Company Number: US-PFIZER INC-2019562243

PATIENT
  Age: 76 Year
  Sex: Male

DRUGS (2)
  1. PEMBROLIZUMAB. [Suspect]
     Active Substance: PEMBROLIZUMAB
     Indication: METASTATIC NEOPLASM
     Dosage: UNK, EVERY 3 WEEKS (Q3 WEEK)
  2. INLYTA [Suspect]
     Active Substance: AXITINIB
     Indication: METASTATIC NEOPLASM
     Dosage: 5 MG, 2X/DAY (TWO TIMES A DAY)

REACTIONS (2)
  - Headache [Unknown]
  - Fatigue [Unknown]
